FAERS Safety Report 10077221 (Version 7)
Quarter: 2017Q2

REPORT INFORMATION
  Report Type: Report from Study
  Country: CA (occurrence: CA)
  Receive Date: 20140414
  Receipt Date: 20170407
  Transmission Date: 20170829
  Serious: Yes (Other)
  Sender: FDA-Public Use
  Company Number: CA-UCBSA-117675

PATIENT
  Age: 43 Year
  Sex: Female

DRUGS (7)
  1. CERTOLIZUMAB PEGOL RA [Suspect]
     Active Substance: CERTOLIZUMAB PEGOL
     Indication: RHEUMATOID ARTHRITIS
     Dosage: 200 MG, EV 2 WEEKS(QOW) (14 DOSES RECIEVED)
     Route: 058
     Dates: start: 20130918, end: 20140704
  2. METHOTREXATE. [Concomitant]
     Active Substance: METHOTREXATE
     Indication: RHEUMATOID ARTHRITIS
     Dosage: SUFFICIENT QUANTITY
     Route: 058
     Dates: start: 20131211
  3. OXYNEO [Concomitant]
     Active Substance: OXYCODONE
     Indication: PAIN
     Dosage: 40 MG, ONCE DAILY (QD)
     Route: 048
     Dates: start: 201306
  4. FOLIC ACID. [Concomitant]
     Active Substance: FOLIC ACID
     Indication: RHEUMATOID ARTHRITIS
     Dosage: SUFFICIENT QUANTITY
     Route: 048
     Dates: start: 20110423
  5. PERCOCET [Concomitant]
     Active Substance: ACETAMINOPHEN\OXYCODONE HYDROCHLORIDE
     Indication: PAIN
     Dosage: 5/325 MG  3X/DAY (TID)
     Route: 048
     Dates: start: 20140610
  6. PREVACID [Concomitant]
     Active Substance: LANSOPRAZOLE
     Indication: GASTROOESOPHAGEAL REFLUX DISEASE
     Dosage: 30 MG, ONCE DAILY (QD)
     Route: 048
     Dates: start: 201110
  7. CLOXACILLIN [Concomitant]
     Active Substance: CLOXACILLIN
     Indication: INFECTION
     Dosage: 500 MG, ONCE DAILY (QD)
     Route: 048
     Dates: start: 20140321, end: 20140807

REACTIONS (2)
  - Pyoderma gangrenosum [Recovered/Resolved]
  - Skin ulcer [Recovered/Resolved]

NARRATIVE: CASE EVENT DATE: 20140320
